FAERS Safety Report 22042492 (Version 1)
Quarter: 2023Q1

REPORT INFORMATION
  Report Type: Other
  Country: US (occurrence: None)
  Receive Date: 20230228
  Receipt Date: 20230228
  Transmission Date: 20230418
  Serious: Yes (Hospitalization)
  Sender: FDA-Public Use
  Company Number: US-ROCHE-3291009

PATIENT
  Age: 31 Year
  Sex: Male
  Weight: 56.750 kg

DRUGS (28)
  1. EVRYSDI [Suspect]
     Active Substance: RISDIPLAM
     Indication: Spinal muscular atrophy
     Route: 048
     Dates: start: 20190805
  2. EVRYSDI [Suspect]
     Active Substance: RISDIPLAM
     Route: 048
     Dates: start: 20201112
  3. EVRYSDI [Suspect]
     Active Substance: RISDIPLAM
     Dosage: TAKE 6.6 MLS BY MOUTH
     Route: 048
  4. PULMOZYME [Concomitant]
     Active Substance: DORNASE ALFA
     Dosage: INHALE 2.5MG INTO THE LUNGS NIGHTLY AT BEDTIME
     Route: 065
  5. PROVENTIL [Concomitant]
     Active Substance: ALBUTEROL
     Indication: Cough
     Dosage: USE 1 VIAL VIA NEBULIZER EVERY 4 HOURS AS NEEDED
     Dates: start: 20200518
  6. PROVENTIL [Concomitant]
     Active Substance: ALBUTEROL
     Indication: Wheezing
  7. PROAIR HFA [Concomitant]
     Active Substance: ALBUTEROL SULFATE
     Indication: Wheezing
     Dates: start: 20190122
  8. WELLBUTRIN XL [Concomitant]
     Active Substance: BUPROPION HYDROCHLORIDE
     Dosage: 90 TABLET
     Route: 048
     Dates: start: 20201120
  9. CELEBREX [Concomitant]
     Active Substance: CELECOXIB
     Dosage: 180 CAPSULE
     Dates: start: 20201109
  10. PULMOZYME [Concomitant]
     Active Substance: DORNASE ALFA
     Dosage: 1 MG/ML
  11. AIMOVIG [Concomitant]
     Active Substance: ERENUMAB-AOOE
     Dosage: 70 MG/ML?INJECT 1ML INTO THE SKIN EVERY 30 DAYS FOR MIGRAINE PREVENTION
     Dates: start: 20201109, end: 20210508
  12. ADVAIR HFA [Concomitant]
     Active Substance: FLUTICASONE PROPIONATE\SALMETEROL XINAFOATE
     Dosage: 115/21 MCG
  13. LASIX [Concomitant]
     Active Substance: FUROSEMIDE
     Indication: Hypertension
     Dosage: 180 TABLETS
     Dates: start: 20201129
  14. NEURONTIN [Concomitant]
     Active Substance: GABAPENTIN
     Route: 048
  15. PROCTOZONE HC [Concomitant]
     Active Substance: HYDROCORTISONE
     Indication: Haemorrhoids
     Dosage: 2.5%
     Route: 054
     Dates: start: 20200322
  16. HYDROCORTISONE [Concomitant]
     Active Substance: HYDROCORTISONE
     Indication: Pruritus
     Route: 061
     Dates: start: 20190614
  17. ATARAX [Concomitant]
     Active Substance: HYDROXYZINE HYDROCHLORIDE
     Dosage: 30 TABLETS
     Dates: start: 20200622
  18. NIZORAL [Concomitant]
     Active Substance: KETOCONAZOLE
     Dates: start: 20201103
  19. PREVACID [Concomitant]
     Active Substance: LANSOPRAZOLE
     Route: 048
  20. VYVANSE [Concomitant]
     Active Substance: LISDEXAMFETAMINE DIMESYLATE
     Indication: Attention deficit hyperactivity disorder
     Dosage: 28 CAPSULE
     Route: 048
     Dates: start: 20201123
  21. ATIVAN [Concomitant]
     Active Substance: LORAZEPAM
     Route: 048
  22. SINGULAIR [Concomitant]
     Active Substance: MONTELUKAST SODIUM
     Dosage: 90 TABLETS
     Dates: start: 20201123
  23. FIBERCON [Concomitant]
     Active Substance: CALCIUM POLYCARBOPHIL
     Route: 048
  24. NURTEC ODT [Concomitant]
     Active Substance: RIMEGEPANT SULFATE
     Indication: Migraine
     Dates: start: 20201112
  25. SPIRONOLACTONE [Concomitant]
     Active Substance: SPIRONOLACTONE
     Indication: Oedema peripheral
     Dosage: TAKE 1 AND 1/2 TO 2 TABLETS BY MOUTH DAILY AS DIRECTED
     Dates: start: 20200630
  26. IMITREX [Concomitant]
     Active Substance: SUMATRIPTAN SUCCINATE
     Dosage: 9 TABLET
     Dates: start: 20200810
  27. TRUVADA [Concomitant]
     Active Substance: EMTRICITABINE\TENOFOVIR DISOPROXIL FUMARATE
     Dosage: 90 TABLET
     Dates: start: 20200716
  28. AMBIEN [Concomitant]
     Active Substance: ZOLPIDEM TARTRATE
     Dosage: 30 TABLET
     Dates: start: 20200622

REACTIONS (4)
  - Pneumonia bacterial [Recovered/Resolved]
  - Pneumonia aspiration [Recovered/Resolved]
  - Asthenia [Not Recovered/Not Resolved]
  - Fatigue [Not Recovered/Not Resolved]

NARRATIVE: CASE EVENT DATE: 20230109
